FAERS Safety Report 8739982 (Version 2)
Quarter: 2012Q4

REPORT INFORMATION
  Report Type: 
  Country: US (occurrence: US)
  Receive Date: 20120823
  Receipt Date: 20120831
  Transmission Date: 20130627
  Serious: Yes (Other)
  Sender: FDA-Public Use
  Company Number: CHPA2012US018028

PATIENT
  Sex: Male

DRUGS (2)
  1. EX-LAX MAX STR LAX PILLS SENNA [Suspect]
     Indication: CONSTIPATION
     Dosage: Unk, Unk
     Route: 048
  2. EX-LAX MAX STR LAX PILLS SENNA [Suspect]
     Dosage: 6DF at one time
     Route: 048

REACTIONS (4)
  - Drug dependence [Recovered/Resolved]
  - Oesophageal stenosis [Recovered/Resolved]
  - Dysphagia [Recovered/Resolved]
  - Overdose [Recovered/Resolved]
